FAERS Safety Report 7768785-4 (Version None)
Quarter: 2011Q3

REPORT INFORMATION
  Report Type: 
  Country: None (occurrence: None)
  Receive Date: 20110922
  Receipt Date: 20110429
  Transmission Date: 20111222
  Serious: No
  Sender: FDA-Public Use
  Company Number: US-ASTRAZENECA-2011SE25757

PATIENT
  Age: 59 Year
  Sex: Female
  Weight: 77.1 kg

DRUGS (5)
  1. SEROQUEL XR [Suspect]
     Route: 048
  2. KLONOPIN [Concomitant]
  3. SEROQUEL XR [Suspect]
     Route: 048
     Dates: start: 20100801, end: 20100801
  4. LITHIUM CARBONATE [Concomitant]
  5. SEROQUEL XR [Suspect]
     Indication: BIPOLAR DISORDER
     Route: 048
     Dates: end: 20100801

REACTIONS (6)
  - VIOLENCE-RELATED SYMPTOM [None]
  - AGITATION [None]
  - NEGATIVE THOUGHTS [None]
  - MOOD ALTERED [None]
  - TEARFULNESS [None]
  - DRUG DOSE OMISSION [None]
